FAERS Safety Report 7822052-9 (Version None)
Quarter: 2011Q4

REPORT INFORMATION
  Report Type: 
  Country: None (occurrence: None)
  Receive Date: 20111018
  Receipt Date: 20111012
  Transmission Date: 20120403
  Serious: Yes (Other)
  Sender: FDA-Public Use
  Company Number: PHEH2011US06855

PATIENT
  Sex: Male

DRUGS (1)
  1. GILENYA [Suspect]
     Dosage: 1 DF, QD
     Route: 048
     Dates: start: 20110926, end: 20110927

REACTIONS (1)
  - BLOOD PRESSURE DECREASED [None]
